FAERS Safety Report 9701850 (Version 1)
Quarter: 2013Q4

REPORT INFORMATION
  Report Type: Spontaneous
  Country: US (occurrence: None)
  Receive Date: 20131120
  Receipt Date: 20131120
  Transmission Date: 20140711
  Serious: No
  Sender: FDA-Public Use
  Company Number: None

PATIENT
  Age: 77 Year
  Sex: Male
  Weight: 84.55 kg

DRUGS (3)
  1. IRINOTECAN (CPT-484 MG 11, CAMPTOSAR) [Suspect]
  2. OXALIPLATIN (ELOXATIN) [Suspect]
  3. BEVACIZUMAB (RHUMAB VEGF) (704865) [Suspect]

REACTIONS (1)
  - Diarrhoea [None]
